FAERS Safety Report 10252208 (Version 6)
Quarter: 2017Q4

REPORT INFORMATION
  Report Type: Spontaneous
  Country: US (occurrence: US)
  Receive Date: 20140623
  Receipt Date: 20171120
  Transmission Date: 20180320
  Serious: Yes (Death, Hospitalization, Other)
  Sender: FDA-Public Use
  Company Number: US-009507513-1406USA008004

PATIENT
  Sex: Female
  Weight: 63.49 kg

DRUGS (9)
  1. BONIVA [Suspect]
     Active Substance: IBANDRONATE SODIUM
     Indication: OSTEOPENIA
  2. ALENDRONATE SODIUM. [Suspect]
     Active Substance: ALENDRONATE SODIUM
     Indication: OSTEOPOROSIS
     Dosage: 70 MG, QW
     Route: 048
     Dates: start: 200806, end: 200912
  3. ALENDRONATE SODIUM. [Suspect]
     Active Substance: ALENDRONATE SODIUM
     Dosage: 70 MG, QW
     Route: 048
     Dates: start: 201009, end: 2011
  4. ALENDRONATE SODIUM. [Suspect]
     Active Substance: ALENDRONATE SODIUM
     Indication: OSTEOPOROSIS
     Dosage: 70 MG, QW
     Route: 048
     Dates: start: 201006, end: 201009
  5. FOSAMAX [Suspect]
     Active Substance: ALENDRONATE SODIUM
     Indication: OSTEOPENIA
     Dosage: UNK
     Route: 048
     Dates: start: 1995, end: 200603
  6. BONIVA [Suspect]
     Active Substance: IBANDRONATE SODIUM
     Indication: OSTEOPOROSIS
     Dosage: 150 MG, QM
     Route: 048
     Dates: start: 200604, end: 200808
  7. ALENDRONATE SODIUM. [Suspect]
     Active Substance: ALENDRONATE SODIUM
     Indication: OSTEOPOROSIS
     Dosage: 70 MG, QW
     Route: 048
     Dates: start: 201001, end: 201004
  8. FOSAMAX [Suspect]
     Active Substance: ALENDRONATE SODIUM
     Indication: OSTEOPOROSIS
     Dosage: 70 MG, QW
     Route: 048
     Dates: end: 200603
  9. CALCIUM (UNSPECIFIED) [Concomitant]
     Active Substance: CALCIUM
     Indication: PRODUCT USED FOR UNKNOWN INDICATION
     Dosage: 1500 MG, UNK
     Route: 065
     Dates: start: 1992

REACTIONS (31)
  - Hypovolaemia [Unknown]
  - Bipolar disorder [Unknown]
  - Hyperlipidaemia [Not Recovered/Not Resolved]
  - Muscle spasms [Unknown]
  - Ketosis [Unknown]
  - Ankle fracture [Unknown]
  - Foot fracture [Unknown]
  - Fall [Unknown]
  - Anaemia postoperative [Unknown]
  - Low turnover osteopathy [Unknown]
  - Post procedural constipation [Unknown]
  - Essential hypertension [Unknown]
  - Upper limb fracture [Unknown]
  - Cluster headache [Unknown]
  - Spinal osteoarthritis [Unknown]
  - Metabolic encephalopathy [Unknown]
  - Bipolar I disorder [Unknown]
  - Reversible ischaemic neurological deficit [Recovering/Resolving]
  - Rheumatoid arthritis [Unknown]
  - Femur fracture [Recovering/Resolving]
  - Delirium [Unknown]
  - Metabolic acidosis [Unknown]
  - Polycythaemia [Unknown]
  - Insomnia [Unknown]
  - Acute psychosis [Unknown]
  - Leukocytosis [Unknown]
  - Intracranial aneurysm [Unknown]
  - Endodontic procedure [Unknown]
  - Starvation [Unknown]
  - Lacunar infarction [Recovering/Resolving]
  - Death [Fatal]

NARRATIVE: CASE EVENT DATE: 20000101
